FAERS Safety Report 20836243 (Version 5)
Quarter: 2022Q3

REPORT INFORMATION
  Report Type: Spontaneous
  Country: US (occurrence: US)
  Receive Date: 20220516
  Receipt Date: 20220702
  Transmission Date: 20221027
  Serious: No
  Sender: FDA-Public Use
  Company Number: US-JNJFOC-20220522572

PATIENT
  Age: 53 Year
  Sex: Female
  Weight: 55.842 kg

DRUGS (6)
  1. STELARA [Suspect]
     Active Substance: USTEKINUMAB
     Indication: Crohn^s disease
     Dosage: 90.00 MG/ML
     Route: 058
     Dates: start: 20220506
  2. STELARA [Suspect]
     Active Substance: USTEKINUMAB
  3. ERGOCALCIFEROL [Concomitant]
     Active Substance: ERGOCALCIFEROL
  4. LOPERAMIDE HYDROCHLORIDE [Concomitant]
     Active Substance: LOPERAMIDE HYDROCHLORIDE
  5. ESCITALOPRAM [Concomitant]
     Active Substance: ESCITALOPRAM OXALATE
  6. MONTELUKAST [Concomitant]
     Active Substance: MONTELUKAST SODIUM

REACTIONS (6)
  - Needle issue [Unknown]
  - Injury associated with device [Unknown]
  - Product dose omission issue [Unknown]
  - Off label use [Unknown]
  - Inappropriate schedule of product administration [Unknown]
  - Procedural complication [Unknown]

NARRATIVE: CASE EVENT DATE: 20220506
